FAERS Safety Report 9197953 (Version 1)
Quarter: 2013Q1

REPORT INFORMATION
  Report Type: Report from Study
  Country: CZ (occurrence: CZ)
  Receive Date: 20130328
  Receipt Date: 20130328
  Transmission Date: 20140127
  Serious: Yes (Hospitalization)
  Sender: FDA-Public Use
  Company Number: CZ-ABBOTT-13P-217-1067020-00

PATIENT
  Age: 54 Year
  Sex: Male

DRUGS (6)
  1. HUMIRA [Suspect]
     Indication: ANKYLOSING SPONDYLITIS
     Dosage: DISCONTINUED FOR 8 WEEKS
     Route: 058
     Dates: start: 20110624, end: 20130128
  2. TREXAN [Concomitant]
     Indication: PRODUCT USED FOR UNKNOWN INDICATION
  3. ACIDUM FOLICUM [Concomitant]
     Indication: PRODUCT USED FOR UNKNOWN INDICATION
  4. PREDNISONUM [Concomitant]
     Indication: PRODUCT USED FOR UNKNOWN INDICATION
  5. SURGAM [Concomitant]
     Indication: PRODUCT USED FOR UNKNOWN INDICATION
  6. CARDILAN [Concomitant]
     Indication: PRODUCT USED FOR UNKNOWN INDICATION

REACTIONS (1)
  - Inguinal hernia [Recovering/Resolving]
